FAERS Safety Report 20654563 (Version 1)
Quarter: 2022Q1

REPORT INFORMATION
  Report Type: Spontaneous
  Country: CN (occurrence: CN)
  Receive Date: 20220330
  Receipt Date: 20220330
  Transmission Date: 20220423
  Serious: Yes (Other)
  Sender: FDA-Public Use
  Company Number: CN-PFIZER INC-202200458165

PATIENT
  Age: 15 Year
  Sex: Male
  Weight: 62 kg

DRUGS (3)
  1. METHOTREXATE [Suspect]
     Active Substance: METHOTREXATE
     Indication: Chemotherapy
     Dosage: 2.5 G, 1X/DAY
     Route: 041
     Dates: start: 20220218, end: 20220218
  2. METHOTREXATE [Suspect]
     Active Substance: METHOTREXATE
     Dosage: 3.0 G, 1X/DAY
     Route: 041
     Dates: start: 20220218, end: 20220221
  3. LEUCOVORIN CALCIUM [Suspect]
     Active Substance: LEUCOVORIN CALCIUM
     Indication: Chemotherapy
     Dosage: NON-PFIZER PRODUCT, TRADE NAME NOT PROVIDED
     Route: 041
     Dates: start: 20220217, end: 20220220

REACTIONS (6)
  - Hypersensitivity [Recovering/Resolving]
  - Furuncle [Unknown]
  - Tenderness [Unknown]
  - Body temperature increased [Unknown]
  - Abscess limb [Unknown]
  - Skin infection [Unknown]

NARRATIVE: CASE EVENT DATE: 20220221
